FAERS Safety Report 16093724 (Version 4)
Quarter: 2020Q3

REPORT INFORMATION
  Report Type: Other
  Country: DE (occurrence: DE)
  Receive Date: 20190320
  Receipt Date: 20200828
  Transmission Date: 20201102
  Serious: Yes (Hospitalization, Other)
  Sender: FDA-Public Use
  Company Number: DE-ROCHE-2280563

PATIENT
  Age: 53 Year
  Sex: Female
  Weight: 85 kg

DRUGS (10)
  1. OCREVUS [Suspect]
     Active Substance: OCRELIZUMAB
     Route: 042
     Dates: end: 20190930
  2. SATIVEX [Concomitant]
     Active Substance: NABIXIMOLS
  3. L?THYROXIN [Concomitant]
     Active Substance: LEVOTHYROXINE SODIUM
  4. SUMATRIPTAN. [Concomitant]
     Active Substance: SUMATRIPTAN
  5. BACLOFEN. [Concomitant]
     Active Substance: BACLOFEN
  6. OCREVUS [Suspect]
     Active Substance: OCRELIZUMAB
     Indication: RELAPSING-REMITTING MULTIPLE SCLEROSIS
     Route: 042
     Dates: start: 20180626
  7. AMANTADIN [Concomitant]
     Active Substance: AMANTADINE
  8. CANDESARTAN. [Concomitant]
     Active Substance: CANDESARTAN
  9. VERAPAMIL [Concomitant]
     Active Substance: VERAPAMIL HYDROCHLORIDE
  10. PREGABALIN. [Concomitant]
     Active Substance: PREGABALIN

REACTIONS (14)
  - Thrombophlebitis [Recovered/Resolved]
  - Infection susceptibility increased [Recovered/Resolved]
  - Pyrexia [Recovered/Resolved]
  - Osteomyelitis [Recovered/Resolved]
  - Bronchitis [Recovered/Resolved]
  - Weight decreased [Not Recovered/Not Resolved]
  - Visual impairment [Not Recovered/Not Resolved]
  - Fatigue [Not Recovered/Not Resolved]
  - Apathy [Not Recovered/Not Resolved]
  - Root canal infection [Recovered/Resolved]
  - Disturbance in attention [Not Recovered/Not Resolved]
  - Gastrointestinal disorder [Not Recovered/Not Resolved]
  - B-lymphocyte count decreased [Recovered/Resolved]
  - T-lymphocyte count decreased [Recovered/Resolved]

NARRATIVE: CASE EVENT DATE: 20180626
